FAERS Safety Report 7973204-9 (Version None)
Quarter: 2011Q4

REPORT INFORMATION
  Report Type: 
  Country: None (occurrence: None)
  Receive Date: 20111213
  Receipt Date: 20111129
  Transmission Date: 20120403
  Serious: Yes (Hospitalization, Other)
  Sender: FDA-Public Use
  Company Number: PHEH2011US010423

PATIENT
  Sex: Female

DRUGS (4)
  1. INSULIN [Suspect]
  2. SANDOSTATIN [Suspect]
     Indication: CARCINOID TUMOUR
     Dosage: 1000 UG, UNK
     Route: 058
  3. PROPRANOLOL [Concomitant]
  4. SANDOSTATIN LAR [Suspect]
     Indication: CARCINOID TUMOUR
     Dosage: 20 MG, EVERY 4 WEEKS
     Dates: start: 20081101, end: 20090501

REACTIONS (8)
  - HYPERTENSION [None]
  - FALL [None]
  - HYPERGLYCAEMIA [None]
  - HYPOTENSION [None]
  - ELECTROLYTE IMBALANCE [None]
  - DEHYDRATION [None]
  - LETHARGY [None]
  - SOMNOLENCE [None]
